FAERS Safety Report 6867512-2 (Version None)
Quarter: 2010Q3

REPORT INFORMATION
  Report Type: 
  Country: None (occurrence: None)
  Receive Date: 20100722
  Receipt Date: 20100621
  Transmission Date: 20110219
  Serious: No
  Sender: FDA-Public Use
  Company Number: US-JNJFOC-20100606726

PATIENT
  Age: 4 Decade
  Sex: Female

DRUGS (4)
  1. INVEGA [Suspect]
     Indication: DELUSION
     Route: 048
  2. INVEGA [Suspect]
     Route: 048
  3. INVEGA [Suspect]
     Indication: BIPOLAR DISORDER
     Route: 048
  4. INVEGA [Suspect]
     Route: 048

REACTIONS (1)
  - GALACTORRHOEA [None]
